FAERS Safety Report 12626499 (Version 2)
Quarter: 2016Q3

REPORT INFORMATION
  Report Type: Spontaneous
  Country: US (occurrence: US)
  Receive Date: 20160805
  Receipt Date: 20160919
  Transmission Date: 20161109
  Serious: Yes (Other)
  Sender: FDA-Public Use
  Company Number: US-PFIZER INC-2016372951

PATIENT
  Age: 64 Year
  Sex: Female

DRUGS (1)
  1. LYRICA [Suspect]
     Active Substance: PREGABALIN
     Indication: BACK PAIN
     Dosage: 300 MG, 2X/DAY

REACTIONS (7)
  - Anxiety [Unknown]
  - Depression [Unknown]
  - Hypoacusis [Not Recovered/Not Resolved]
  - Drug dependence [Unknown]
  - Drug effect incomplete [Unknown]
  - Suicidal ideation [Unknown]
  - Panic attack [Unknown]
